FAERS Safety Report 6330168-1 (Version None)
Quarter: 2009Q3

REPORT INFORMATION
  Report Type: 
  Country: None (occurrence: None)
  Receive Date: 20090827
  Receipt Date: 20090817
  Transmission Date: 20100115
  Serious: Yes (Other)
  Sender: FDA-Public Use
  Company Number: ES-RANBAXY-2009RR-25992

PATIENT
  Age: 54 Year
  Sex: Male

DRUGS (2)
  1. PENTAZOCINE [Suspect]
     Indication: BACK PAIN
     Dosage: 30 MG, UNK
  2. PENTAZOCINE [Suspect]
     Indication: DRUG ABUSE

REACTIONS (2)
  - DRUG ABUSE [None]
  - SKIN ULCER [None]
